FAERS Safety Report 18811759 (Version 2)
Quarter: 2021Q1

REPORT INFORMATION
  Report Type: Spontaneous
  Country: US (occurrence: US)
  Receive Date: 20210129
  Receipt Date: 20210201
  Transmission Date: 20210419
  Serious: Yes (Death, Hospitalization)
  Sender: FDA-Public Use
  Company Number: US-CELGENEUS-USA-20210107036

PATIENT
  Age: 78 Year
  Sex: Male

DRUGS (2)
  1. ELIQUIS [Concomitant]
     Active Substance: APIXABAN
     Indication: THROMBOSIS
     Route: 065
  2. POMALYST [Suspect]
     Active Substance: POMALIDOMIDE
     Indication: PLASMA CELL MYELOMA
     Dosage: 2 MILLIGRAM
     Route: 048
     Dates: start: 20200220, end: 20210109

REACTIONS (10)
  - Cardio-respiratory arrest [Fatal]
  - Cardiac arrest [Fatal]
  - Leukocytosis [Unknown]
  - Blood lactic acid increased [Unknown]
  - Asthenia [Unknown]
  - Pain [Unknown]
  - Ventricular fibrillation [Fatal]
  - Hypotension [Unknown]
  - Sepsis [Unknown]
  - Clostridium difficile colitis [Unknown]
